FAERS Safety Report 21896470 (Version 1)
Quarter: 2023Q1

REPORT INFORMATION
  Report Type: Report from Study
  Country: US (occurrence: US)
  Receive Date: 20230123
  Receipt Date: 20230123
  Transmission Date: 20230417
  Serious: Yes (Hospitalization)
  Sender: FDA-Public Use
  Company Number: US-ORPHANEU-2023000254

PATIENT

DRUGS (1)
  1. CARBAGLU [Suspect]
     Active Substance: CARGLUMIC ACID
     Indication: Hyperglycinaemia
     Dosage: 400 MILLIGRAM, BID
     Dates: start: 20221214

REACTIONS (2)
  - Ammonia increased [Unknown]
  - Acidosis [Unknown]

NARRATIVE: CASE EVENT DATE: 20221231
